FAERS Safety Report 17854875 (Version 2)
Quarter: 2020Q2

REPORT INFORMATION
  Report Type: Spontaneous
  Country: US (occurrence: US)
  Receive Date: 20200603
  Receipt Date: 20200615
  Transmission Date: 20200714
  Serious: No
  Sender: FDA-Public Use
  Company Number: US-PFIZER INC-2020215343

PATIENT
  Age: 52 Year
  Sex: Male
  Weight: 115.67 kg

DRUGS (4)
  1. PROTONIX [Suspect]
     Active Substance: PANTOPRAZOLE SODIUM
     Dosage: UNK
  2. HYDROXYZINE PAMOATE. [Suspect]
     Active Substance: HYDROXYZINE PAMOATE
     Dosage: UNK
  3. CARAFATE [Suspect]
     Active Substance: SUCRALFATE
     Dosage: UNK
  4. BENTYL [Suspect]
     Active Substance: DICYCLOMINE HYDROCHLORIDE
     Dosage: UNK

REACTIONS (5)
  - Insomnia [Unknown]
  - Feeding disorder [Unknown]
  - Anxiety [Unknown]
  - Constipation [Unknown]
  - Abdominal hernia [Unknown]
